FAERS Safety Report 7228112-8 (Version None)
Quarter: 2011Q1

REPORT INFORMATION
  Report Type: 
  Country: None (occurrence: None)
  Receive Date: 20110114
  Receipt Date: 20110107
  Transmission Date: 20110831
  Serious: Yes (Other)
  Sender: FDA-Public Use
  Company Number: CA-PFIZER INC-2011004931

PATIENT
  Age: 46 Year
  Sex: Female

DRUGS (5)
  1. VALTREX [Concomitant]
     Dosage: UNK
  2. CIPRALEX [Concomitant]
     Dosage: UNK
  3. NEXIUM [Concomitant]
     Dosage: UNK
  4. LYRICA [Suspect]
     Indication: PAIN
     Dosage: 75 MG, 2X/DAY
     Dates: start: 20101015
  5. SYNTHROID [Concomitant]
     Dosage: UNK

REACTIONS (2)
  - CATARACT [None]
  - VISUAL IMPAIRMENT [None]
